FAERS Safety Report 8517614-X (Version None)
Quarter: 2012Q3

REPORT INFORMATION
  Report Type: 
  Country: None (occurrence: None)
  Receive Date: 20120718
  Receipt Date: 20120703
  Transmission Date: 20120928
  Serious: Yes (Other)
  Sender: FDA-Public Use
  Company Number: DK-ROCHE-1084090

PATIENT

DRUGS (2)
  1. ACTEMRA [Suspect]
     Indication: RHEUMATOID ARTHRITIS
  2. ACTEMRA [Suspect]
     Indication: PROSTATIC SPECIFIC ANTIGEN

REACTIONS (3)
  - INFECTION [None]
  - DRUG INEFFECTIVE [None]
  - PARAESTHESIA [None]
